FAERS Safety Report 15090023 (Version 1)
Quarter: 2018Q2

REPORT INFORMATION
  Report Type: Spontaneous
  Country: JP (occurrence: JP)
  Receive Date: 20180629
  Receipt Date: 20180629
  Transmission Date: 20180711
  Serious: Yes (Life-Threatening, Hospitalization)
  Sender: FDA-Public Use
  Company Number: JP-JNJFOC-20180311555

PATIENT
  Age: 54 Year
  Sex: Female
  Weight: 67 kg

DRUGS (4)
  1. AMLODIPINE [Concomitant]
     Active Substance: AMLODIPINE BESYLATE
     Indication: HYPERTENSION
     Route: 048
     Dates: end: 20171022
  2. DIENOGEST [Concomitant]
     Active Substance: DIENOGEST
     Route: 048
     Dates: end: 20171022
  3. CANAGLU [Suspect]
     Active Substance: CANAGLIFLOZIN
     Indication: TYPE 1 DIABETES MELLITUS
     Route: 048
     Dates: start: 20170922, end: 20171022
  4. PAROXETINE. [Concomitant]
     Active Substance: PAROXETINE
     Indication: PANIC DISORDER
     Route: 048
     Dates: end: 20171022

REACTIONS (3)
  - Diabetic ketoacidosis [Recovered/Resolved]
  - Product use in unapproved indication [Unknown]
  - Off label use [Unknown]

NARRATIVE: CASE EVENT DATE: 20171022
